FAERS Safety Report 8246914-6 (Version None)
Quarter: 2012Q1

REPORT INFORMATION
  Report Type: 
  Country: None (occurrence: None)
  Receive Date: 20120330
  Receipt Date: 20120326
  Transmission Date: 20120608
  Serious: Yes (Death, Hospitalization)
  Sender: FDA-Public Use
  Company Number: US-JNJFOC-20120313110

PATIENT
  Sex: Female
  Weight: 100.7 kg

DRUGS (11)
  1. ZOFRAN [Concomitant]
     Indication: NAUSEA
     Route: 048
  2. AMITRIPTYLINE HCL [Concomitant]
     Route: 048
  3. OXYCODONE HCL [Concomitant]
     Indication: PAIN
     Dosage: EVERY 4 HOURS AS NEEDED
     Route: 048
     Dates: start: 20110101
  4. METHOTREXATE [Concomitant]
     Indication: IMMUNE SYSTEM DISORDER
     Dosage: 20 MG/ 8 (2.5 MG) WEEKLY
     Route: 048
  5. FENTANYL-100 [Suspect]
     Indication: MIXED CONNECTIVE TISSUE DISEASE
     Dosage: NDC#0781-7242-55
     Route: 062
     Dates: start: 20110101
  6. FIORICET [Concomitant]
     Indication: MIGRAINE
     Dosage: AS NEEDED
     Route: 048
     Dates: start: 20040101
  7. GABAPENTIN [Concomitant]
     Indication: FIBROMYALGIA
     Route: 048
     Dates: start: 20080101
  8. AMITRIPTYLINE HCL [Concomitant]
     Indication: SLEEP DISORDER
     Route: 048
     Dates: start: 20060101, end: 20120101
  9. ENBREL [Concomitant]
     Indication: IMMUNE SYSTEM DISORDER
     Route: 058
     Dates: start: 20080101
  10. FLONASE [Concomitant]
     Indication: NASAL CONGESTION
     Dosage: AS NEEDED
     Route: 045
     Dates: start: 20100101
  11. CYMBALTA [Concomitant]
     Indication: DEPRESSION
     Route: 048
     Dates: start: 20060101

REACTIONS (14)
  - DEATH [None]
  - CHEST PAIN [None]
  - BLOOD POTASSIUM ABNORMAL [None]
  - MUSCLE SPASMS [None]
  - SLEEP DISORDER [None]
  - PRODUCT QUALITY ISSUE [None]
  - FLUID RETENTION [None]
  - CARDIAC VALVE DISEASE [None]
  - ATRIOVENTRICULAR BLOCK SECOND DEGREE [None]
  - INFLAMMATION [None]
  - POOR QUALITY DRUG ADMINISTERED [None]
  - DRUG INEFFECTIVE [None]
  - GASTROOESOPHAGEAL REFLUX DISEASE [None]
  - PAIN [None]
